FAERS Safety Report 25134848 (Version 2)
Quarter: 2025Q3

REPORT INFORMATION
  Report Type: Report from Study
  Country: US (occurrence: US)
  Receive Date: 20250328
  Receipt Date: 20250723
  Transmission Date: 20251021
  Serious: Yes (Hospitalization, Other)
  Sender: AUROBINDO
  Company Number: US-AUROBINDO-AUR-APL-2025-016449

PATIENT
  Age: 50 Year
  Sex: Female

DRUGS (39)
  1. CYCLOPHOSPHAMIDE [Suspect]
     Active Substance: CYCLOPHOSPHAMIDE
     Indication: Peripheral T-cell lymphoma unspecified stage IV
     Dosage: 750 MILLIGRAM/SQ. METER, ONCE A DAY((ON DAY 1 OF 21 DAYS CYLE)
     Route: 042
     Dates: start: 20250221
  2. CYCLOPHOSPHAMIDE [Suspect]
     Active Substance: CYCLOPHOSPHAMIDE
     Dosage: 750 MG/M2, ONCE A DAY (CYCLE 2 DAY 1)
     Route: 042
     Dates: start: 20250313
  3. CYCLOPHOSPHAMIDE [Suspect]
     Active Substance: CYCLOPHOSPHAMIDE
     Dosage: 750 MG/M2, ONCE A DAY (CYCLE 3 DAY 1)
     Route: 042
     Dates: start: 20250401
  4. CYCLOPHOSPHAMIDE [Suspect]
     Active Substance: CYCLOPHOSPHAMIDE
     Dosage: 750 MG/M2, ONCE A DAY (CYCLE 4 DAY 1)
     Route: 042
     Dates: start: 20250424
  5. CYCLOPHOSPHAMIDE [Suspect]
     Active Substance: CYCLOPHOSPHAMIDE
     Dosage: 750 MG/M2, ONCE A DAY (CYCLE 5 DAY 1)
     Route: 042
     Dates: start: 20250519
  6. CYCLOPHOSPHAMIDE [Suspect]
     Active Substance: CYCLOPHOSPHAMIDE
     Dosage: 750 MG/M2, ONCE A DAY (CYCLE 6 DAY 1)
     Route: 042
     Dates: start: 20250609
  7. PREDNISONE [Suspect]
     Active Substance: PREDNISONE
     Indication: Peripheral T-cell lymphoma unspecified stage IV
     Dosage: 100 MILLIGRAM, ONCE A DAY(FROM DAY 1 TO DAY 5 OF 21 DAYS CYLE)
     Route: 048
     Dates: start: 20250221
  8. PREDNISONE [Suspect]
     Active Substance: PREDNISONE
     Dosage: 100 MILLIGRAM, ONCE A DAY (CYCLE 2 DAY 1)
     Route: 048
     Dates: start: 20250313
  9. PREDNISONE [Suspect]
     Active Substance: PREDNISONE
     Dosage: 100 MILLIGRAM, ONCE A DAY (CYCLE 3 DAY 1)
     Route: 048
     Dates: start: 20250401
  10. PREDNISONE [Suspect]
     Active Substance: PREDNISONE
     Dosage: 100 MILLIGRAM, ONCE A DAY (CYCLE 4 DAY 1)
     Route: 048
     Dates: start: 20250424
  11. PREDNISONE [Suspect]
     Active Substance: PREDNISONE
     Dosage: 100 MILLIGRAM, ONCE A DAY (CYCLE 5 DAY 1)
     Route: 048
     Dates: start: 20250519
  12. PREDNISONE [Suspect]
     Active Substance: PREDNISONE
     Dosage: 100 MILLIGRAM, ONCE A DAY (CYCLE 6 DAY 1)
     Route: 048
     Dates: start: 20250609
  13. DOXORUBICIN [Suspect]
     Active Substance: DOXORUBICIN
     Indication: Peripheral T-cell lymphoma unspecified stage IV
     Dosage: 50 MILLIGRAM/SQ. METER, ONCE A DAY50 MILLIGRAM/SQ. METER, ONCE A DAY((ON DAY 1 OF 21 DAYS CYL)
     Route: 042
     Dates: start: 20250221
  14. DOXORUBICIN [Suspect]
     Active Substance: DOXORUBICIN
     Dosage: 50 MILLIGRAM/SQ. METER, ONCE A DAY (CYCLE 2 DAY 1)
     Route: 042
     Dates: start: 20250313
  15. DOXORUBICIN [Suspect]
     Active Substance: DOXORUBICIN
     Dosage: 50 MILLIGRAM/SQ. METER, ONCE A DAY (CYCLE 3 DAY 1)
     Route: 042
     Dates: start: 20250401
  16. DOXORUBICIN [Suspect]
     Active Substance: DOXORUBICIN
     Dosage: 50 MILLIGRAM/SQ. METER, ONCE A DAY (CYCLE 4 DAY 1)
     Route: 042
     Dates: start: 20250424
  17. DOXORUBICIN [Suspect]
     Active Substance: DOXORUBICIN
     Dosage: 50 MILLIGRAM/SQ. METER, ONCE A DAY (CYCLE 5 DAY 1)
     Route: 042
     Dates: start: 20250519
  18. DOXORUBICIN [Suspect]
     Active Substance: DOXORUBICIN
     Dosage: 50 MILLIGRAM/SQ. METER, ONCE A DAY (CYCLE 6 DAY 1)
     Route: 042
     Dates: start: 20250609
  19. VINCRISTINE [Suspect]
     Active Substance: VINCRISTINE
     Indication: Peripheral T-cell lymphoma unspecified stage IV
     Dosage: 1.4 MILLIGRAM/SQ. METER, ONCE A DAY(ON DAY 1 OF 21 DAYS CYLE)
     Route: 042
     Dates: start: 20250221
  20. VINCRISTINE [Suspect]
     Active Substance: VINCRISTINE
     Dosage: 1.4 MILLIGRAM/SQ. METER, ONCE A DAY(CYCLE 2 DAY 1 )
     Route: 042
     Dates: start: 20250313
  21. VINCRISTINE [Suspect]
     Active Substance: VINCRISTINE
     Dosage: 1.4 MILLIGRAM/SQ. METER, ONCE A DAY(CYCLE 3 DAY 1)
     Route: 042
     Dates: start: 20250401
  22. VINCRISTINE [Suspect]
     Active Substance: VINCRISTINE
     Dosage: 1.4 MILLIGRAM/SQ. METER, ONCE A DAY(CYCLE 4 DAY 1)
     Route: 042
     Dates: start: 20250424
  23. VINCRISTINE [Suspect]
     Active Substance: VINCRISTINE
     Dosage: 1.4 MILLIGRAM/SQ. METER, ONCE A DAY(CYCLE 5 DAY 1)
     Route: 042
     Dates: start: 20250519
  24. VINCRISTINE [Suspect]
     Active Substance: VINCRISTINE
     Dosage: 1.4 MILLIGRAM/SQ. METER, ONCE A DAY(CYCLE 6 DAY 1)
     Route: 042
     Dates: start: 20250609
  25. FOLIC ACID [Concomitant]
     Active Substance: FOLIC ACID
     Indication: Supportive care
     Dosage: 25 MILLIGRAM, ONCE A DAY
     Route: 048
     Dates: start: 20250218
  26. ALLOPURINOL [Concomitant]
     Active Substance: ALLOPURINOL
     Indication: Inflammation
     Dosage: 300 MILLIGRAM, ONCE A DAY
     Route: 048
     Dates: start: 20250221
  27. ISONIAZID [Concomitant]
     Active Substance: ISONIAZID
     Indication: Tuberculosis
     Dosage: UNK UNK, ONCE A DAY
     Route: 048
     Dates: start: 20250220
  28. OMEPRAZOLE [Concomitant]
     Active Substance: OMEPRAZOLE
     Indication: Gastritis prophylaxis
     Dosage: 20 MILLIGRAM, ONCE A DAY
     Route: 048
     Dates: start: 20250220
  29. ONDANSETRON [Concomitant]
     Active Substance: ONDANSETRON
     Indication: Premedication
     Route: 042
     Dates: start: 20250221, end: 20250221
  30. ONDANSETRON [Concomitant]
     Active Substance: ONDANSETRON
     Indication: Prophylaxis
     Dosage: 8 MILLIGRAM, ONCE A DAY
     Route: 042
     Dates: start: 20250401, end: 20250401
  31. PANTOPRAZOLE SODIUM [Concomitant]
     Active Substance: PANTOPRAZOLE SODIUM
     Indication: Premedication
     Route: 042
     Dates: start: 20250221, end: 20250221
  32. PANTOPRAZOLE SODIUM [Concomitant]
     Active Substance: PANTOPRAZOLE SODIUM
     Indication: Prophylaxis
     Dosage: 40 MILLIGRAM, ONCE A DAY
     Route: 042
     Dates: start: 20250401, end: 20250401
  33. LEVOTHYROXINE SODIUM [Concomitant]
     Active Substance: LEVOTHYROXINE SODIUM
     Indication: Product used for unknown indication
     Route: 048
     Dates: start: 2010
  34. PREDNISONE [Concomitant]
     Active Substance: PREDNISONE
     Indication: Product used for unknown indication
     Dosage: 30 MILLIGRAM, ONCE A DAY
     Route: 048
     Dates: start: 20250213
  35. PREDNISONE [Concomitant]
     Active Substance: PREDNISONE
     Dosage: 100 MILLIGRAM, ONCE A DAY
     Route: 048
     Dates: start: 20250221
  36. FILGRASTIM [Concomitant]
     Active Substance: FILGRASTIM
     Indication: Adverse event
     Dosage: 300 MICROGRAM, ONCE A DAY
     Route: 058
     Dates: start: 20250513, end: 20250514
  37. MESNA [Concomitant]
     Active Substance: MESNA
     Indication: Infection prophylaxis
     Dosage: 400 MILLIGRAM, ONCE A DAY
     Route: 042
     Dates: start: 20250221, end: 20250221
  38. NEULASTA [Concomitant]
     Active Substance: PEGFILGRASTIM
     Indication: Prophylaxis
     Dosage: 0.5 MILLILITER, ONCE A DAY
     Route: 058
     Dates: start: 20250519, end: 20250519
  39. NEULASTA [Concomitant]
     Active Substance: PEGFILGRASTIM
     Dosage: 0.5 MILLILITER, ONCE A DAY
     Route: 058
     Dates: start: 20250609, end: 20250609

REACTIONS (7)
  - Tumour necrosis [Recovered/Resolved]
  - Neutropenia [Recovered/Resolved]
  - Dry mouth [Recovering/Resolving]
  - Aspartate aminotransferase increased [Recovering/Resolving]
  - Blood alkaline phosphatase increased [Recovering/Resolving]
  - Alanine aminotransferase increased [Recovering/Resolving]
  - Overdose [Recovered/Resolved]

NARRATIVE: CASE EVENT DATE: 20250226
